FAERS Safety Report 4817351-9 (Version None)
Quarter: 2005Q4

REPORT INFORMATION
  Report Type: 
  Country: None (occurrence: None)
  Receive Date: 20051031
  Receipt Date: 20051018
  Transmission Date: 20060501
  Serious: Yes (Other)
  Sender: FDA-Public Use
  Company Number: 2005144125

PATIENT
  Sex: Female
  Weight: 56.6996 kg

DRUGS (1)
  1. BENADRYL [Suspect]
     Indication: INSOMNIA
     Dosage: 10 ULTRATABS AT ONCE
     Dates: start: 20030101

REACTIONS (4)
  - DYSPHONIA [None]
  - FEAR [None]
  - HYPERACUSIS [None]
  - SOMNOLENCE [None]
